FAERS Safety Report 24782991 (Version 1)
Quarter: 2024Q4

REPORT INFORMATION
  Report Type: Spontaneous
  Country: US (occurrence: US)
  Receive Date: 20241227
  Receipt Date: 20241227
  Transmission Date: 20250115
  Serious: Yes (Other)
  Sender: RADIUS PHARM
  Company Number: US-RADIUS HEALTH INC.-2024US010480

PATIENT
  Sex: Male

DRUGS (3)
  1. TYMLOS [Suspect]
     Active Substance: ABALOPARATIDE
     Indication: Senile osteoporosis
     Dosage: 80 MCG QD
     Route: 058
     Dates: start: 202404
  2. TYMLOS [Suspect]
     Active Substance: ABALOPARATIDE
     Indication: Plasma cell myeloma
  3. TYMLOS [Suspect]
     Active Substance: ABALOPARATIDE
     Indication: Plasma cell myeloma in remission

REACTIONS (3)
  - Neuropathy peripheral [Recovering/Resolving]
  - Loss of personal independence in daily activities [Recovering/Resolving]
  - Fatigue [Recovering/Resolving]
